FAERS Safety Report 11065224 (Version 2)
Quarter: 2015Q2

REPORT INFORMATION
  Report Type: Spontaneous
  Country: US (occurrence: US)
  Receive Date: 20150424
  Receipt Date: 20150525
  Transmission Date: 20150821
  Serious: No
  Sender: FDA-Public Use
  Company Number: US-JNJFOC-20140304978

PATIENT
  Sex: Female

DRUGS (7)
  1. NUCYNTA ER [Suspect]
     Active Substance: TAPENTADOL HYDROCHLORIDE
     Indication: BREAKTHROUGH PAIN
     Dosage: EVERY 4-6 HOURS
     Route: 048
     Dates: start: 20120530, end: 20130514
  2. NUCYNTA ER [Suspect]
     Active Substance: TAPENTADOL HYDROCHLORIDE
     Indication: BREAKTHROUGH PAIN
     Dosage: EVERY 4-6 HOURS
     Route: 048
     Dates: start: 20110504, end: 201205
  3. NUCYNTA ER [Suspect]
     Active Substance: TAPENTADOL HYDROCHLORIDE
     Indication: ARTHRALGIA
     Dosage: EVERY 4-6 HOURS
     Route: 048
     Dates: start: 20130514
  4. NUCYNTA ER [Suspect]
     Active Substance: TAPENTADOL HYDROCHLORIDE
     Indication: BREAKTHROUGH PAIN
     Dosage: EVERY 4-6 HOURS
     Route: 048
     Dates: start: 20130514
  5. NUCYNTA ER [Suspect]
     Active Substance: TAPENTADOL HYDROCHLORIDE
     Indication: ARTHRALGIA
     Dosage: EVERY 4-6 HOURS
     Route: 048
     Dates: start: 20120530, end: 20130514
  6. NUCYNTA ER [Suspect]
     Active Substance: TAPENTADOL HYDROCHLORIDE
     Indication: ARTHRALGIA
     Dosage: EVERY 4-6 HOURS
     Route: 048
     Dates: start: 20110504, end: 201205
  7. MOTRIN [Concomitant]
     Active Substance: IBUPROFEN
     Indication: ARTHRITIS
     Route: 065

REACTIONS (1)
  - Drug ineffective [Unknown]
